FAERS Safety Report 23982322 (Version 1)
Quarter: 2024Q2

REPORT INFORMATION
  Report Type: Spontaneous
  Country: JP (occurrence: JP)
  Receive Date: 20240617
  Receipt Date: 20240617
  Transmission Date: 20240716
  Serious: Yes (Other)
  Sender: FDA-Public Use
  Company Number: JP-NOVPHSZ-GXJP2019JP000882

PATIENT
  Age: 26 Year
  Sex: Female

DRUGS (17)
  1. ETHAMBUTOL [Suspect]
     Active Substance: ETHAMBUTOL HYDROCHLORIDE
     Indication: Tuberculosis
     Dosage: UNK
     Route: 048
     Dates: start: 201305, end: 201306
  2. ETHAMBUTOL [Suspect]
     Active Substance: ETHAMBUTOL HYDROCHLORIDE
     Dosage: UNK
     Route: 048
     Dates: start: 201308, end: 201411
  3. ETHAMBUTOL [Suspect]
     Active Substance: ETHAMBUTOL HYDROCHLORIDE
     Dosage: 750 MG, UNK
     Route: 048
     Dates: start: 20180830, end: 20181002
  4. CLOFAZIMINE [Suspect]
     Active Substance: CLOFAZIMINE
     Indication: Tuberculosis
     Dosage: 50 MG, UNK
     Route: 048
     Dates: start: 20181016
  5. DELAMANID [Suspect]
     Active Substance: DELAMANID
     Indication: Pulmonary tuberculosis
     Dosage: 200 MG, UNK
     Route: 048
     Dates: start: 20180830, end: 20190214
  6. DELAMANID [Suspect]
     Active Substance: DELAMANID
     Dosage: 200 MG, UNK
     Route: 048
     Dates: start: 20190328
  7. AMINOSALICYLATE CALCIUM [Suspect]
     Active Substance: AMINOSALICYLATE CALCIUM
     Indication: Pulmonary tuberculosis
     Dosage: UNK
     Route: 048
     Dates: start: 201305, end: 201411
  8. AMINOSALICYLATE CALCIUM [Suspect]
     Active Substance: AMINOSALICYLATE CALCIUM
     Dosage: 10 G, UNK
     Route: 048
     Dates: start: 20180830, end: 20180908
  9. KANAMYCIN SULFATE [Concomitant]
     Active Substance: KANAMYCIN SULFATE
     Indication: Tuberculosis
     Dosage: 750 MG, UNK
     Route: 030
     Dates: start: 20180830, end: 20180908
  10. KANAMYCIN SULFATE [Concomitant]
     Active Substance: KANAMYCIN SULFATE
     Dosage: 750 MG, UNK
     Route: 030
     Dates: start: 20181016
  11. PYRAZINAMIDE [Concomitant]
     Active Substance: PYRAZINAMIDE
     Indication: Pulmonary tuberculosis
     Dosage: UNK
     Route: 048
     Dates: start: 201308, end: 201308
  12. PYRAZINAMIDE [Concomitant]
     Active Substance: PYRAZINAMIDE
     Dosage: 1200 MG, UNK
     Route: 048
     Dates: start: 20180830
  13. ETHIONAMIDE [Concomitant]
     Active Substance: ETHIONAMIDE
     Indication: Tuberculosis
     Dosage: 200 MG, UNK
     Route: 048
     Dates: start: 20180830
  14. ETHIONAMIDE [Concomitant]
     Active Substance: ETHIONAMIDE
     Dosage: 400 MG, UNK
     Route: 048
     Dates: end: 20181002
  15. ETHIONAMIDE [Concomitant]
     Active Substance: ETHIONAMIDE
     Dosage: 400 MG, UNK
     Route: 048
     Dates: start: 20181016
  16. LINEZOLID [Concomitant]
     Active Substance: LINEZOLID
     Indication: Tuberculosis
     Dosage: 1200 MG, UNK
     Route: 048
     Dates: start: 20180830, end: 20181002
  17. LINEZOLID [Concomitant]
     Active Substance: LINEZOLID
     Dosage: 1200 MG, UNK
     Route: 048
     Dates: start: 20181016

REACTIONS (4)
  - Polyneuropathy [Unknown]
  - Decreased appetite [Unknown]
  - Vomiting [Recovered/Resolved]
  - Nausea [Recovered/Resolved]

NARRATIVE: CASE EVENT DATE: 20180901
